FAERS Safety Report 6141281-6 (Version None)
Quarter: 2009Q2

REPORT INFORMATION
  Report Type: 
  Country: None (occurrence: None)
  Receive Date: 20090402
  Receipt Date: 20090330
  Transmission Date: 20091009
  Serious: Yes (Death)
  Sender: FDA-Public Use
  Company Number: US-B.I. PHARMACEUTICALS,INC./RIDGEFIELD-2009-BP-00913BP

PATIENT
  Sex: Male

DRUGS (4)
  1. SPIRIVA [Suspect]
  2. COMBIVENT [Suspect]
  3. ADVAIR HFA [Suspect]
  4. VENTOLIN [Suspect]

REACTIONS (1)
  - CHRONIC OBSTRUCTIVE PULMONARY DISEASE [None]
